FAERS Safety Report 16455940 (Version 1)
Quarter: 2019Q2

REPORT INFORMATION
  Report Type: Report from Study
  Country: None (occurrence: CA)
  Receive Date: 20190620
  Receipt Date: 20190620
  Transmission Date: 20190711
  Serious: Yes (Hospitalization, Other)
  Sender: FDA-Public Use
  Company Number: CA-ABBVIE-19K-028-2736679-00

PATIENT
  Age: 45 Year
  Sex: Female

DRUGS (1)
  1. HUMIRA [Suspect]
     Active Substance: ADALIMUMAB
     Indication: ANKYLOSING SPONDYLITIS
     Route: 058
     Dates: start: 20190312, end: 20190507

REACTIONS (15)
  - Inflammation [Unknown]
  - Cough [Not Recovered/Not Resolved]
  - Headache [Unknown]
  - Injection site swelling [Not Recovered/Not Resolved]
  - Abdominal pain [Not Recovered/Not Resolved]
  - Injection site rash [Unknown]
  - Tenderness [Not Recovered/Not Resolved]
  - Injection site rash [Recovered/Resolved]
  - Rash [Unknown]
  - Head discomfort [Unknown]
  - Swelling [Unknown]
  - Injection site pain [Not Recovered/Not Resolved]
  - Skin reaction [Unknown]
  - Dizziness [Recovered/Resolved]
  - Muscle spasms [Unknown]

NARRATIVE: CASE EVENT DATE: 2019
